FAERS Safety Report 8414456-0 (Version None)
Quarter: 2012Q2

REPORT INFORMATION
  Report Type: 
  Country: None (occurrence: None)
  Receive Date: 20120605
  Receipt Date: 20120530
  Transmission Date: 20120825
  Serious: Yes (Death, Other)
  Sender: FDA-Public Use
  Company Number: US-MPIJNJ-2012-00586

PATIENT

DRUGS (4)
  1. ACYCLOVIR [Concomitant]
     Indication: HERPES ZOSTER
  2. ACYCLOVIR [Concomitant]
     Indication: PROPHYLAXIS
  3. DEXAMETHASONE [Suspect]
     Indication: MULTIPLE MYELOMA
     Dosage: 40 MG, CYCLIC
     Route: 048
  4. VELCADE [Suspect]
     Indication: MULTIPLE MYELOMA
     Dosage: 1.3 MG/M2, CYCLIC
     Route: 042

REACTIONS (2)
  - DEATH [None]
  - ADRENAL CARCINOMA [None]
